FAERS Safety Report 6282258 (Version 3)
Quarter: 2024Q1

REPORT INFORMATION
  Report Type: Spontaneous
  Country: ES (occurrence: ES)
  Receive Date: 20070406
  Receipt Date: 20240315
  Transmission Date: 20240410
  Serious: Yes (Life-Threatening, Other)
  Sender: FDA-Public Use
  Company Number: ES-PFIZER INC-2005172751

PATIENT
  Age: 23 Year
  Sex: Male
  Weight: 81 kg

DRUGS (4)
  1. LYRICA [Suspect]
     Active Substance: PREGABALIN
     Indication: Social anxiety disorder
     Dosage: UNK UNK, QD
     Route: 048
     Dates: start: 20050830, end: 20060101
  2. SERTRALINE [Concomitant]
     Active Substance: SERTRALINE HYDROCHLORIDE
     Indication: Product used for unknown indication
     Dosage: UNK
     Route: 065
     Dates: start: 20050830, end: 20060127
  3. LYRICA [Concomitant]
     Active Substance: PREGABALIN
     Indication: Social anxiety disorder
     Dosage: UNK, QD
     Route: 048
     Dates: start: 20051101, end: 20060101
  4. LYRICA [Concomitant]
     Active Substance: PREGABALIN
     Indication: Social anxiety disorder
     Dosage: 150 MILLIGRAM, QD
     Route: 048
     Dates: start: 20050830, end: 20051001

REACTIONS (1)
  - Hyperglycaemia [Recovered/Resolved]

NARRATIVE: CASE EVENT DATE: 20051001
